FAERS Safety Report 20494424 (Version 3)
Quarter: 2022Q2

REPORT INFORMATION
  Report Type: Spontaneous
  Country: FR (occurrence: FR)
  Receive Date: 20220221
  Receipt Date: 20220407
  Transmission Date: 20220721
  Serious: Yes (Hospitalization)
  Sender: FDA-Public Use
  Company Number: None

PATIENT
  Age: 76 Year
  Sex: Male

DRUGS (10)
  1. TECENTRIQ [Suspect]
     Active Substance: ATEZOLIZUMAB
     Indication: Hepatocellular carcinoma
     Route: 041
     Dates: start: 20211201, end: 20211222
  2. GLICLAZIDE [Concomitant]
     Active Substance: GLICLAZIDE
  3. IRBESARTAN [Concomitant]
     Active Substance: IRBESARTAN
  4. RAMIPRIL [Concomitant]
     Active Substance: RAMIPRIL
  5. METFORMIN HYDROCHLORIDE [Concomitant]
     Active Substance: METFORMIN HYDROCHLORIDE
  6. LEVOTHYROXINE [Concomitant]
     Active Substance: LEVOTHYROXINE
  7. OMEPRAZOLE [Concomitant]
     Active Substance: OMEPRAZOLE
  8. SIMVASTATIN [Concomitant]
     Active Substance: SIMVASTATIN
  9. ASPIRIN [Concomitant]
     Active Substance: ASPIRIN
  10. INSULIN NOS [Concomitant]
     Active Substance: INSULIN NOS

REACTIONS (3)
  - Orbital myositis [Recovered/Resolved]
  - Muscular weakness [Recovered/Resolved]
  - Autoimmune myocarditis [Recovered/Resolved]

NARRATIVE: CASE EVENT DATE: 20211226
